FAERS Safety Report 24339022 (Version 2)
Quarter: 2024Q4

REPORT INFORMATION
  Report Type: Spontaneous
  Country: US (occurrence: US)
  Receive Date: 20240919
  Receipt Date: 20241001
  Transmission Date: 20250115
  Serious: Yes (Hospitalization)
  Sender: TEVA
  Company Number: US-TEVA-VS-3243811

PATIENT
  Sex: Male

DRUGS (6)
  1. DANAZOL [Suspect]
     Active Substance: DANAZOL
     Indication: Gene mutation
     Dosage: INITIAL DOSAGE NOT STATED
     Route: 065
     Dates: start: 201903
  2. DANAZOL [Suspect]
     Active Substance: DANAZOL
     Indication: Gene mutation
     Dosage: DOSE ESCALATED
     Route: 065
     Dates: start: 201904
  3. EVEROLIMUS [Concomitant]
     Active Substance: EVEROLIMUS
     Indication: Immunosuppressant drug therapy
     Route: 065
  4. PREDNISONE [Concomitant]
     Active Substance: PREDNISONE
     Indication: Immunosuppressant drug therapy
     Route: 065
  5. MYCOPHENOLIC ACID [Concomitant]
     Active Substance: MYCOPHENOLIC ACID
     Indication: Immunosuppressant drug therapy
     Route: 065
  6. TACROLIMUS [Concomitant]
     Active Substance: TACROLIMUS
     Indication: Immunosuppressant drug therapy
     Route: 065

REACTIONS (2)
  - Pancreatitis [Recovered/Resolved]
  - Cholelithiasis [Recovered/Resolved]
